FAERS Safety Report 10622830 (Version 5)
Quarter: 2015Q2

REPORT INFORMATION
  Report Type: Report from Study
  Country: US (occurrence: US)
  Receive Date: 20141203
  Receipt Date: 20150421
  Transmission Date: 20150821
  Serious: Yes (Other)
  Sender: FDA-Public Use
  Company Number: US-VERTEX PHARMACEUTICALS-2014-004692

PATIENT
  Age: 6 Year
  Sex: Male
  Weight: 20 kg

DRUGS (22)
  1. VX-770 [Suspect]
     Active Substance: IVACAFTOR
     Indication: CYSTIC FIBROSIS
     Dosage: 75 MG, BID
     Route: 048
     Dates: start: 20130926, end: 20141201
  2. VITAMIN D3 [Concomitant]
     Active Substance: CHOLECALCIFEROL
     Indication: MALABSORPTION
     Dosage: 2400 IU, BID
     Route: 048
     Dates: start: 2011
  3. COLACE [Concomitant]
     Active Substance: DOCUSATE SODIUM
     Indication: DISTAL INTESTINAL OBSTRUCTION SYNDROME
     Dosage: 2 X WEEK
     Route: 048
     Dates: start: 20131021
  4. PULMOZYME [Concomitant]
     Active Substance: DORNASE ALFA
     Indication: CYSTIC FIBROSIS LUNG
     Dosage: 25 MG, QD
     Route: 055
     Dates: start: 2010
  5. TOBI [Concomitant]
     Active Substance: TOBRAMYCIN
     Indication: CYSTIC FIBROSIS LUNG
     Dosage: 300 MG BID EVERY OTHER 28 DAYS
     Route: 055
     Dates: start: 20140604
  6. PEPTAMEN JUNIOR [Concomitant]
     Active Substance: DIETARY SUPPLEMENT
     Indication: MALABSORPTION
     Dosage: 3 CANS PER NIGHT
     Dates: start: 2011
  7. NASONEX [Concomitant]
     Active Substance: MOMETASONE FUROATE
     Indication: SINUSITIS
     Dosage: 1 SPRAY EACH NOSTRIL BID
     Route: 045
     Dates: start: 2011
  8. PULMICORT TURBUHALER [Concomitant]
     Active Substance: BUDESONIDE
     Indication: CYSTIC FIBROSIS LUNG
     Dosage: 2 ML, QD
     Route: 055
     Dates: start: 2009
  9. ZANTAC [Concomitant]
     Active Substance: RANITIDINE HYDROCHLORIDE
     Indication: MALABSORPTION
     Dosage: 150 MG, QD
     Route: 048
     Dates: start: 20140514
  10. VX-770 [Suspect]
     Active Substance: IVACAFTOR
     Dosage: 75 MG, BID
     Route: 048
     Dates: start: 20141219
  11. NEILMED SINUS RINSE [Concomitant]
     Indication: SINUSITIS
     Dosage: UNK, PRN
     Route: 045
     Dates: start: 20131025
  12. MUCOMYST [Concomitant]
     Active Substance: ACETYLCYSTEINE
     Indication: CYSTIC FIBROSIS LUNG
     Dosage: 5 ML, BID
     Dates: start: 2011
  13. PREVACID [Concomitant]
     Active Substance: LANSOPRAZOLE
     Indication: MALABSORPTION
     Dosage: 30 MG, QD
     Route: 048
     Dates: start: 20140506
  14. EXLAX [Concomitant]
     Indication: DISTAL INTESTINAL OBSTRUCTION SYNDROME
     Dosage: 15 MG, 3 X PER WEEK
     Route: 048
     Dates: start: 20131021
  15. EMLA [Concomitant]
     Active Substance: LIDOCAINE\PRILOCAINE
     Indication: ANALGESIC THERAPY
     Dosage: 1 TUBE PRN
     Route: 061
     Dates: start: 20130828
  16. XOPENEX [Concomitant]
     Active Substance: LEVALBUTEROL HYDROCHLORIDE
     Indication: CYSTIC FIBROSIS LUNG
     Dosage: 2 PUFFS BID PRN
     Route: 055
     Dates: start: 2012
  17. ALBUTEROL. [Concomitant]
     Active Substance: ALBUTEROL
     Indication: CYSTIC FIBROSIS LUNG
     Dosage: 3 ML, UNK
     Route: 055
     Dates: start: 2011
  18. PERTZYE [Concomitant]
     Active Substance: PANCRELIPASE AMYLASE\PANCRELIPASE LIPASE\PANCRELIPASE PROTEASE
     Indication: MALABSORPTION
     Dosage: 3 W/MEALS, SNACKS, AND TUBE FEEDS
     Route: 048
     Dates: start: 20140506
  19. FLONASE [Concomitant]
     Active Substance: FLUTICASONE PROPIONATE
     Indication: SINUSITIS
     Dosage: 1 SPRAY EACH NOSTRIL PRN
     Route: 045
     Dates: start: 20131025
  20. HYPERTONIC SALINE SOLUTION [Concomitant]
     Active Substance: SODIUM CHLORIDE
     Indication: CYSTIC FIBROSIS LUNG
     Dosage: 4 ML, BID
     Route: 055
     Dates: start: 20120212
  21. AQUADEKS [Concomitant]
     Indication: MALABSORPTION
     Dosage: 3 ML, BID
     Route: 048
     Dates: start: 2008
  22. NOVOLOG [Concomitant]
     Active Substance: INSULIN ASPART
     Indication: CYSTIC FIBROSIS RELATED DIABETES
     Dosage: 100 MCG/ML 1:25 CARB RATIO
     Route: 058
     Dates: start: 201212

REACTIONS (1)
  - Cataract subcapsular [Recovered/Resolved]

NARRATIVE: CASE EVENT DATE: 20141125
